FAERS Safety Report 7608471-4 (Version None)
Quarter: 2011Q3

REPORT INFORMATION
  Report Type: 
  Country: None (occurrence: None)
  Receive Date: 20110714
  Receipt Date: 20110705
  Transmission Date: 20111222
  Serious: Yes (Other)
  Sender: FDA-Public Use
  Company Number: US-PERRIGO-11US005490

PATIENT
  Sex: Female
  Weight: 61.224 kg

DRUGS (8)
  1. NICOTINE [Suspect]
     Indication: SMOKING CESSATION THERAPY
     Dosage: 2-3 PIECES, DAILY
     Route: 002
     Dates: start: 20100501, end: 20110629
  2. NICOTINE [Suspect]
     Dosage: 5 PIECES DAILY
     Route: 002
     Dates: start: 20110630, end: 20110701
  3. ALCOHOL [Suspect]
     Indication: PRODUCT USED FOR UNKNOWN INDICATION
     Dosage: UNK
     Route: 048
     Dates: start: 20110701, end: 20110701
  4. THYROID HORMONES [Concomitant]
     Indication: HYPOTHYROIDISM
     Dosage: UNK
     Route: 048
  5. NICOTINE [Suspect]
     Dosage: 1/2 PIECE, BID
     Route: 002
     Dates: start: 20110630
  6. CHARCOAL [Concomitant]
     Indication: PRODUCT USED FOR UNKNOWN INDICATION
     Dosage: 2 CAPLETS AFTER EACH MEAL
     Route: 048
     Dates: start: 20110401
  7. UNSPECIFIED ASTHMA RESCUE INHALER [Concomitant]
     Indication: ASTHMA
     Dosage: UNK, PRN
     Route: 065
  8. MULTI-VITAMIN [Concomitant]
     Indication: PRODUCT USED FOR UNKNOWN INDICATION
     Dosage: UNK
     Route: 048

REACTIONS (7)
  - NICOTINE DEPENDENCE [None]
  - INCORRECT DRUG ADMINISTRATION DURATION [None]
  - DYSPNOEA [None]
  - INCORRECT DOSE ADMINISTERED [None]
  - PULSE PRESSURE DECREASED [None]
  - DIARRHOEA [None]
  - BLOOD POTASSIUM DECREASED [None]
